FAERS Safety Report 8415384-7 (Version None)
Quarter: 2012Q2

REPORT INFORMATION
  Report Type: 
  Country: None (occurrence: None)
  Receive Date: 20120606
  Receipt Date: 20120531
  Transmission Date: 20120825
  Serious: Yes (Hospitalization, Other)
  Sender: FDA-Public Use
  Company Number: PHHY2012VN043870

PATIENT
  Sex: Female

DRUGS (4)
  1. BIO-CALCIUM [Concomitant]
     Dosage: 2 DF , QD
     Route: 048
  2. DICLOFENAC SODIUM [Concomitant]
     Dosage: 2 DF(50 MG), DAILY
     Route: 048
     Dates: end: 20120523
  3. ZOLEDRONOC ACID [Suspect]
     Indication: OSTEOPOROSIS
     Dosage: 5 MG/100 ML
     Route: 042
     Dates: start: 20120502
  4. GLUCOSAMINE [Concomitant]
     Dosage: 2 DF(500 MG), DAILY
     Route: 048

REACTIONS (7)
  - OCULAR ICTERUS [None]
  - YELLOW SKIN [None]
  - URINE COLOUR ABNORMAL [None]
  - FATIGUE [None]
  - HEPATITIS B [None]
  - DECREASED APPETITE [None]
  - JAUNDICE [None]
